FAERS Safety Report 7637472-5 (Version None)
Quarter: 2011Q3

REPORT INFORMATION
  Report Type: 
  Country: None (occurrence: None)
  Receive Date: 20110726
  Receipt Date: 20110715
  Transmission Date: 20111222
  Serious: Yes (Hospitalization)
  Sender: FDA-Public Use
  Company Number: PHHY2011US25447

PATIENT
  Sex: Female

DRUGS (5)
  1. EXJADE [Suspect]
     Indication: IRON OVERLOAD
     Dosage: 1000 MG, DAILY
     Route: 048
     Dates: start: 20110301
  2. OMEPRAZOLE [Concomitant]
     Dosage: 20 MG, DAILY
     Route: 048
  3. ALENDRONATE SODIUM [Concomitant]
     Dosage: 35 MG, DAILY
     Route: 048
  4. AMLODIPINE [Concomitant]
     Dosage: 5 MG, QD
     Route: 048
  5. CILOSTAZOL [Concomitant]
     Route: 048

REACTIONS (3)
  - DEHYDRATION [None]
  - DIARRHOEA [None]
  - RASH ERYTHEMATOUS [None]
